FAERS Safety Report 9804997 (Version 1)
Quarter: 2014Q1

REPORT INFORMATION
  Report Type: Report from Study
  Country: US (occurrence: US)
  Receive Date: 20140109
  Receipt Date: 20140109
  Transmission Date: 20141002
  Serious: Yes (Hospitalization, Other)
  Sender: FDA-Public Use
  Company Number: US-ROCHE-1328775

PATIENT
  Age: 51 Year
  Sex: Male

DRUGS (4)
  1. PEGASYS [Suspect]
     Indication: HEPATITIS C
     Route: 058
     Dates: start: 20130906, end: 20131210
  2. COPEGUS [Suspect]
     Indication: HEPATITIS C
     Route: 048
     Dates: start: 20130906, end: 20131212
  3. INCIVEK [Suspect]
     Indication: HEPATITIS C
     Route: 048
     Dates: start: 20130906, end: 20131206
  4. PROPRANOLOL [Concomitant]
     Indication: BLOOD PRESSURE
     Route: 048

REACTIONS (12)
  - Local swelling [Recovering/Resolving]
  - Ear deformity acquired [Recovering/Resolving]
  - Chills [Unknown]
  - Body temperature increased [Recovered/Resolved]
  - Insomnia [Recovered/Resolved]
  - Local swelling [Recovering/Resolving]
  - Genital swelling [Recovering/Resolving]
  - Otorrhoea [Recovered/Resolved]
  - Rash generalised [Recovering/Resolving]
  - Alopecia [Unknown]
  - Asthenia [Recovering/Resolving]
  - Nausea [Recovering/Resolving]
